FAERS Safety Report 13865179 (Version 2)
Quarter: 2018Q2

REPORT INFORMATION
  Report Type: Spontaneous
  Country: FR (occurrence: FR)
  Receive Date: 20170814
  Receipt Date: 20180427
  Transmission Date: 20180711
  Serious: Yes (Hospitalization)
  Sender: FDA-Public Use
  Company Number: FR-JNJFOC-20170806408

PATIENT
  Age: 18 Year
  Sex: Female

DRUGS (6)
  1. PAROXETINE HCL-ANHYDRAAT A [Suspect]
     Active Substance: PAROXETINE HYDROCHLORIDE
     Indication: AFFECTIVE DISORDER
     Route: 048
     Dates: start: 20170714, end: 20170716
  2. TERCIAN [Suspect]
     Active Substance: CYAMEMAZINE
     Indication: MENTAL DISORDER
     Route: 048
     Dates: start: 20170714
  3. TERCIAN [Suspect]
     Active Substance: CYAMEMAZINE
     Indication: MENTAL DISORDER
     Route: 048
     Dates: start: 20170715, end: 20170716
  4. RISPERDAL [Suspect]
     Active Substance: RISPERIDONE
     Indication: MENTAL DISORDER
     Route: 048
     Dates: start: 201705
  5. TIAPRIDAL [Suspect]
     Active Substance: TIAPRIDE HYDROCHLORIDE
     Indication: MENTAL DISORDER
     Route: 048
     Dates: start: 201705, end: 20170713
  6. LEPTICUR [Suspect]
     Active Substance: TROPATEPINE HYDROCHLORIDE
     Indication: PRODUCT USED FOR UNKNOWN INDICATION
     Route: 065
     Dates: start: 2017

REACTIONS (6)
  - Neuroleptic malignant syndrome [Recovered/Resolved with Sequelae]
  - Blister [Unknown]
  - Bladder dilatation [Unknown]
  - Diet refusal [Unknown]
  - Pyrexia [Recovered/Resolved]
  - Extrapyramidal disorder [Recovered/Resolved with Sequelae]

NARRATIVE: CASE EVENT DATE: 2017
